FAERS Safety Report 4925966-2 (Version None)
Quarter: 2006Q1

REPORT INFORMATION
  Report Type: 
  Country: None (occurrence: None)
  Receive Date: 20060228
  Receipt Date: 20060217
  Transmission Date: 20060701
  Serious: Yes (Death)
  Sender: FDA-Public Use
  Company Number: US-JNJFOC-20060204757

PATIENT

DRUGS (2)
  1. ULTRAM [Suspect]
     Indication: DRUG USE FOR UNKNOWN INDICATION
  2. OXYCODONE [Suspect]
     Indication: PAIN

REACTIONS (1)
  - STILLBIRTH [None]
